FAERS Safety Report 5452693-8 (Version None)
Quarter: 2007Q3

REPORT INFORMATION
  Report Type: 
  Country: None (occurrence: None)
  Receive Date: 20070914
  Receipt Date: 20070905
  Transmission Date: 20080115
  Serious: Yes (Other)
  Sender: FDA-Public Use
  Company Number: US-JNJFOC-20070901251

PATIENT
  Sex: Female
  Weight: 79.38 kg

DRUGS (11)
  1. TOPAMAX [Suspect]
     Indication: WEIGHT DECREASED
     Route: 048
  2. TOPAMAX [Suspect]
     Indication: CONVULSION
     Route: 048
  3. TOPAMAX [Suspect]
     Indication: MIGRAINE PROPHYLAXIS
     Route: 048
  4. LITHIUM [Concomitant]
     Indication: BIPOLAR DISORDER
     Route: 048
  5. PRILOSEC [Concomitant]
     Indication: ULCER
     Route: 048
  6. ZANTAC 150 [Concomitant]
     Indication: ULCER
     Route: 048
  7. NEURONTIN [Concomitant]
     Indication: CONVULSION
     Route: 048
  8. ADVAIR DISKUS 100/50 [Concomitant]
     Indication: ASTHMA
     Route: 055
  9. ADVAIR DISKUS 100/50 [Concomitant]
     Indication: MULTIPLE ALLERGIES
     Route: 055
  10. TYLENOL (CAPLET) [Concomitant]
     Indication: HEADACHE
     Dosage: 1000 - 2000 MG
     Route: 048
  11. ALLERGY MEDICATIONS [Concomitant]
     Indication: MULTIPLE ALLERGIES
     Dosage: 2 -4 DAILY SINCE 1974
     Route: 048

REACTIONS (1)
  - VISUAL DISTURBANCE [None]
